FAERS Safety Report 4815543-6 (Version None)
Quarter: 2005Q4

REPORT INFORMATION
  Report Type: 
  Country: None (occurrence: None)
  Receive Date: 20051031
  Receipt Date: 20051005
  Transmission Date: 20060501
  Serious: Yes (Hospitalization, Other)
  Sender: FDA-Public Use
  Company Number: US-AMGEN-US153102

PATIENT
  Age: 42 Year
  Sex: Male

DRUGS (9)
  1. NEUPOGEN [Suspect]
     Indication: PERIPHERAL BLOOD STEM CELL APHERESIS
     Dates: start: 20050901, end: 20050901
  2. ENOXAPARIN SODIUM [Concomitant]
  3. ARANESP [Concomitant]
     Route: 058
  4. AMBIEN [Concomitant]
  5. ZOLEDRONIC ACID [Concomitant]
  6. CO-TRIMOXAZOLE [Concomitant]
  7. DEXAMETHASONE [Concomitant]
  8. LANSOPRAZOLE [Concomitant]
  9. CYCLOPHOSPHAMIDE [Concomitant]
     Dates: start: 20050908, end: 20050908

REACTIONS (1)
  - SPLENIC INFARCTION [None]
